FAERS Safety Report 5636238-5 (Version None)
Quarter: 2008Q1

REPORT INFORMATION
  Report Type: 
  Country: None (occurrence: None)
  Receive Date: 20080225
  Receipt Date: 20080123
  Transmission Date: 20080703
  Serious: No
  Sender: FDA-Public Use
  Company Number: US-BAYER-200812446NA

PATIENT
  Age: 26 Year
  Sex: Female
  Weight: 59 kg

DRUGS (5)
  1. MIRENA [Suspect]
     Indication: CONTRACEPTION
     Route: 015
     Dates: start: 20080122
  2. ATENOLOL [Concomitant]
  3. FUROSEMIDE [Concomitant]
  4. CLONAZEPAM [Concomitant]
  5. BUPROPION HCL [Concomitant]

REACTIONS (1)
  - ABDOMINAL PAIN [None]
